FAERS Safety Report 5369078-5 (Version None)
Quarter: 2007Q2

REPORT INFORMATION
  Report Type: 
  Country: None (occurrence: None)
  Receive Date: 20070625
  Receipt Date: 20070301
  Transmission Date: 20071010
  Serious: Yes (Hospitalization)
  Sender: FDA-Public Use
  Company Number: US-ASTRAZENECA-2007UW02766

PATIENT
  Age: 50 Year
  Sex: Male

DRUGS (10)
  1. CRESTOR [Suspect]
     Route: 048
     Dates: end: 20061128
  2. RABEPRAZOLE SODIUM [Concomitant]
  3. CLONIDINE [Concomitant]
  4. ISOSORBIDE MONONITRATE [Concomitant]
  5. LABETALOL HCL [Concomitant]
  6. NITROGLYCERIN [Concomitant]
  7. FUROSEMIDE [Concomitant]
  8. HYDRALAZINE HCL [Concomitant]
  9. SODIUM BICARBONATE [Concomitant]
  10. CANDESARTAN [Concomitant]
     Route: 048

REACTIONS (3)
  - CHEST PAIN [None]
  - HYPERTENSION [None]
  - RHABDOMYOLYSIS [None]
